FAERS Safety Report 20944938 (Version 1)
Quarter: 2022Q2

REPORT INFORMATION
  Report Type: Report from Study
  Country: GB (occurrence: GB)
  Receive Date: 20220610
  Receipt Date: 20220610
  Transmission Date: 20220721
  Serious: Yes (Other)
  Sender: FDA-Public Use
  Company Number: GB-NOVARTISPH-NVSC2022GB131234

PATIENT
  Sex: Male

DRUGS (1)
  1. OMNITROPE [Suspect]
     Active Substance: SOMATROPIN
     Indication: Hypopituitarism
     Dosage: 0.5 MG, QD (ROUTE: AS DIRECTED)
     Route: 065

REACTIONS (5)
  - Brain injury [Unknown]
  - Confusional state [Unknown]
  - Cerebral disorder [Unknown]
  - Product dose omission issue [Unknown]
  - Device mechanical issue [Unknown]
